FAERS Safety Report 9730833 (Version 1)
Quarter: 2013Q4

REPORT INFORMATION
  Report Type: Spontaneous
  Country: FR (occurrence: FR)
  Receive Date: 20131205
  Receipt Date: 20131205
  Transmission Date: 20140711
  Serious: Yes (Death)
  Sender: FDA-Public Use
  Company Number: FR-ROCHE-1312022

PATIENT
  Age: 66 Year
  Sex: Female

DRUGS (10)
  1. AVASTIN [Suspect]
     Indication: METASTASIS
     Dosage: AT DAY 1 AND DAY 4 MONTHLY
     Route: 042
     Dates: start: 20130204, end: 20130916
  2. GEMZAR [Suspect]
     Indication: METASTASIS
     Dosage: DAY1, DAY8 AND DAY15
     Route: 042
     Dates: start: 201309
  3. ZOMETA [Concomitant]
  4. ARIMIDEX [Concomitant]
  5. TAXOTERE [Concomitant]
  6. EPIADRIAMYCIN [Concomitant]
  7. ENDOXAN [Concomitant]
  8. AROMASIN [Concomitant]
  9. FASLODEX [Concomitant]
  10. TAXOL [Concomitant]

REACTIONS (5)
  - Encephalopathy [Fatal]
  - Hypertension [Fatal]
  - Convulsion [Fatal]
  - Proteinuria [Fatal]
  - Thrombocytopenia [Fatal]
